FAERS Safety Report 10877887 (Version 1)
Quarter: 2015Q1

REPORT INFORMATION
  Report Type: Spontaneous
  Country: IE (occurrence: None)
  Receive Date: 20150224
  Receipt Date: 20150224
  Transmission Date: 20150721
  Serious: Yes (Other)
  Sender: FDA-Public Use
  Company Number: SP09070

PATIENT
  Age: 21 Year
  Sex: Male

DRUGS (1)
  1. MOVIPREP [Suspect]
     Active Substance: ASCORBIC ACID\POLYETHYLENE GLYCOL 3350\POTASSIUM CHLORIDE\SODIUM ASCORBATE\SODIUM CHLORIDE\SODIUM SULFATE
     Indication: BOWEL PREPARATION
     Route: 048
     Dates: start: 20150121, end: 20150122

REACTIONS (5)
  - Exophthalmos [None]
  - Urticaria [None]
  - Exposure via ingestion [None]
  - Throat tightness [None]
  - Rash generalised [None]

NARRATIVE: CASE EVENT DATE: 20150121
